FAERS Safety Report 18766758 (Version 1)
Quarter: 2021Q1

REPORT INFORMATION
  Report Type: Spontaneous
  Country: ES (occurrence: ES)
  Receive Date: 20210121
  Receipt Date: 20210121
  Transmission Date: 20210419
  Serious: Yes (Death, Other)
  Sender: FDA-Public Use
  Company Number: ES-ACCORD-215125

PATIENT
  Age: 69 Year
  Sex: Male
  Weight: 80 kg

DRUGS (3)
  1. LOPINAVIR/RITONAVIR [Interacting]
     Active Substance: LOPINAVIR\RITONAVIR
     Indication: COVID-19
     Dosage: 10 ML / DAY
     Route: 048
     Dates: start: 20200324, end: 20200403
  2. FUROSEMIDE. [Suspect]
     Active Substance: FUROSEMIDE
     Indication: POLYURIA
     Dosage: FOLLOWING DOSE PER DAY: 24/3:30 MG, 25/3:50 MG, 27/3:60 MG, 28/3: 120 MG, 29/3:26 MG
     Route: 042
     Dates: start: 20200325, end: 20200329
  3. HYDROXYCHLOROQUINE [Interacting]
     Active Substance: HYDROXYCHLOROQUINE
     Indication: COVID-19
     Route: 048
     Dates: start: 20200324, end: 20200331

REACTIONS (5)
  - Renal failure [Recovered/Resolved]
  - Hypernatraemia [Recovered/Resolved]
  - Off label use [Unknown]
  - Drug interaction [Unknown]
  - Large intestine perforation [Fatal]

NARRATIVE: CASE EVENT DATE: 20200328
